FAERS Safety Report 22161475 (Version 6)
Quarter: 2024Q2

REPORT INFORMATION
  Report Type: Spontaneous
  Country: CA (occurrence: CA)
  Receive Date: 20230331
  Receipt Date: 20240529
  Transmission Date: 20240716
  Serious: Yes (Death, Hospitalization, Other)
  Sender: FDA-Public Use
  Company Number: CA-PFIZER INC-202300135849

PATIENT
  Age: 60 Year
  Sex: Female

DRUGS (8)
  1. RITUXIMAB [Suspect]
     Active Substance: RITUXIMAB
     Dosage: UNK
     Route: 065
  2. SOLIRIS [Suspect]
     Active Substance: ECULIZUMAB
     Indication: Neuromyelitis optica spectrum disorder
     Dosage: 1200 MG 1 EVERY 2 WEEKS
     Route: 042
  3. SOLIRIS [Suspect]
     Active Substance: ECULIZUMAB
     Dosage: 1200 MG 1 EVERY 2 WEEKS
     Route: 042
  4. SOLIRIS [Suspect]
     Active Substance: ECULIZUMAB
     Dosage: UNK
     Route: 065
  5. SOLIRIS [Suspect]
     Active Substance: ECULIZUMAB
     Indication: Neuromyelitis optica spectrum disorder
     Dosage: 900 MG, WEEKLY
     Route: 042
  6. CALCIUM [Concomitant]
     Active Substance: CALCIUM
     Dosage: UNK
     Route: 065
  7. TYLENOL [Concomitant]
     Active Substance: ACETAMINOPHEN
     Dosage: UNK
     Route: 065
  8. VITAMIN D NOS [Concomitant]
     Active Substance: CHOLECALCIFEROL\ERGOCALCIFEROL
     Dosage: UNK
     Route: 065

REACTIONS (10)
  - Neuromyelitis optica spectrum disorder [Fatal]
  - Sepsis [Fatal]
  - Bacteraemia [Fatal]
  - Endocarditis [Fatal]
  - Infection [Fatal]
  - Nutritional condition abnormal [Fatal]
  - Cardiac failure [Fatal]
  - Bacterial sepsis [Fatal]
  - Cardiac arrest [Fatal]
  - Brain oedema [Fatal]
